FAERS Safety Report 9388648 (Version 1)
Quarter: 2013Q3

REPORT INFORMATION
  Report Type: Other
  Country: CH (occurrence: CH)
  Receive Date: 20130708
  Receipt Date: 20130708
  Transmission Date: 20140515
  Serious: Yes (Death, Other)
  Sender: FDA-Public Use
  Company Number: CH-ACTELION-A-CH2013-85238

PATIENT
  Age: 46 Year
  Sex: Male

DRUGS (2)
  1. TRACLEER [Suspect]
     Indication: PULMONARY ARTERIAL HYPERTENSION
     Dosage: UNK
     Route: 048
  2. SILDENAFIL [Concomitant]
     Indication: PULMONARY ARTERIAL HYPERTENSION

REACTIONS (5)
  - Cor pulmonale [Fatal]
  - Syncope [Fatal]
  - Dyspnoea [Fatal]
  - Cardiac output decreased [Fatal]
  - Pulmonary arterial hypertension [Fatal]
